FAERS Safety Report 5695700-X (Version None)
Quarter: 2008Q2

REPORT INFORMATION
  Report Type: 
  Country: None (occurrence: None)
  Receive Date: 20080407
  Receipt Date: 20080328
  Transmission Date: 20081010
  Serious: Yes (Life-Threatening, Hospitalization)
  Sender: FDA-Public Use
  Company Number: FR-ELI_LILLY_AND_COMPANY-FR200801005076

PATIENT
  Sex: Female

DRUGS (4)
  1. ZYPREXA [Suspect]
     Route: 064
     Dates: start: 20070201, end: 20070903
  2. TRANDATE [Concomitant]
     Dosage: UNK, UNK
     Route: 064
     Dates: start: 20070201, end: 20070903
  3. ASPEGIC 1000 [Concomitant]
     Dosage: UNK, UNK
     Route: 064
     Dates: start: 20070201, end: 20070903
  4. CORTICOSTEROID NOS [Concomitant]
     Route: 064

REACTIONS (7)
  - DRUG EXPOSURE DURING PREGNANCY [None]
  - DRUG EXPOSURE VIA BREAST MILK [None]
  - FOETAL GROWTH RETARDATION [None]
  - FOETAL HEART RATE DISORDER [None]
  - HEPATIC FUNCTION ABNORMAL [None]
  - NEONATAL RESPIRATORY DISTRESS SYNDROME [None]
  - PREMATURE BABY [None]
